FAERS Safety Report 6925242-2 (Version None)
Quarter: 2010Q3

REPORT INFORMATION
  Report Type: 
  Country: None (occurrence: None)
  Receive Date: 20100810
  Receipt Date: 20100803
  Transmission Date: 20110219
  Serious: Yes (Other)
  Sender: FDA-Public Use
  Company Number: IMP_05077_2010

PATIENT
  Sex: Female

DRUGS (2)
  1. MIDODRINE 5 MG [Suspect]
     Indication: POSTURAL ORTHOSTATIC TACHYCARDIA SYNDROME
     Dosage: (10 MG TID)
     Dates: start: 20100802, end: 20100803
  2. ATENOLOL [Concomitant]

REACTIONS (4)
  - BLOOD PRESSURE INCREASED [None]
  - HYPERSENSITIVITY [None]
  - PARAESTHESIA [None]
  - URTICARIA [None]
